FAERS Safety Report 23815524 (Version 6)
Quarter: 2024Q3

REPORT INFORMATION
  Report Type: Spontaneous
  Country: US (occurrence: US)
  Receive Date: 20240503
  Receipt Date: 20240830
  Transmission Date: 20241017
  Serious: No
  Sender: PFIZER
  Company Number: US-PFIZER INC-202400098577

PATIENT
  Age: 65 Year
  Sex: Female
  Weight: 52.16 kg

DRUGS (1)
  1. ESTRING [Suspect]
     Active Substance: ESTRADIOL
     Indication: Atrophic vulvovaginitis
     Dosage: 2 MILLIGRAMS AND 7.5 UGS IN 24 HOURS
     Route: 067
     Dates: start: 20240429

REACTIONS (2)
  - Vulvovaginal discomfort [Recovered/Resolved]
  - Device difficult to use [Recovered/Resolved]

NARRATIVE: CASE EVENT DATE: 20240401
